FAERS Safety Report 7828783-9 (Version None)
Quarter: 2011Q4

REPORT INFORMATION
  Report Type: 
  Country: None (occurrence: None)
  Receive Date: 20111020
  Receipt Date: 20111017
  Transmission Date: 20120403
  Serious: Yes (Other)
  Sender: FDA-Public Use
  Company Number: US-AMGEN-USASP2010006363

PATIENT
  Age: 50 Year
  Sex: Male

DRUGS (4)
  1. RITUXIMAB [Concomitant]
  2. CORTICOSTEROIDS [Concomitant]
  3. NPLATE [Suspect]
     Indication: IDIOPATHIC THROMBOCYTOPENIC PURPURA
     Dosage: 500 MUG, UNK
     Dates: start: 20101104, end: 20101125
  4. IMMUNOGLOBULINS [Concomitant]

REACTIONS (7)
  - PRIAPISM [None]
  - CYTOMEGALOVIRUS ENTEROCOLITIS [None]
  - CRYPTOCOCCAL FUNGAEMIA [None]
  - SEROSITIS [None]
  - PLATELET COUNT ABNORMAL [None]
  - GASTROINTESTINAL HAEMORRHAGE [None]
  - PANCREATITIS [None]
